FAERS Safety Report 23665503 (Version 1)
Quarter: 2024Q1

REPORT INFORMATION
  Report Type: Spontaneous
  Country: US (occurrence: US)
  Receive Date: 20240323
  Receipt Date: 20240323
  Transmission Date: 20240410
  Serious: No
  Sender: FDA-Public Use
  Company Number: US-SA-SAC20240321001172

PATIENT
  Age: 76 Year
  Sex: Male

DRUGS (1)
  1. REZUROCK [Suspect]
     Active Substance: BELUMOSUDIL
     Indication: Graft versus host disease in skin
     Dosage: 200 MG, QD
     Route: 048
     Dates: start: 20230818

REACTIONS (3)
  - Spinal stenosis [Unknown]
  - Spinal pain [Unknown]
  - Loss of personal independence in daily activities [Unknown]
